FAERS Safety Report 7083211-9 (Version None)
Quarter: 2010Q4

REPORT INFORMATION
  Report Type: 
  Country: None (occurrence: None)
  Receive Date: 20101104
  Receipt Date: 20090219
  Transmission Date: 20110411
  Serious: No
  Sender: FDA-Public Use
  Company Number: US-KINGPHARMUSA00001-K200900178

PATIENT

DRUGS (1)
  1. FLECTOR [Suspect]
     Indication: NECK PAIN
     Dosage: UNK
     Route: 061

REACTIONS (1)
  - RASH [None]
